FAERS Safety Report 6721760-0 (Version None)
Quarter: 2010Q2

REPORT INFORMATION
  Report Type: 
  Country: None (occurrence: None)
  Receive Date: 20100512
  Receipt Date: 20100507
  Transmission Date: 20101027
  Serious: Yes (Death, Hospitalization)
  Sender: FDA-Public Use
  Company Number: CA-ROCHE-685602

PATIENT
  Sex: Male
  Weight: 91.2 kg

DRUGS (5)
  1. BLINDED BEVACIZUMAB [Suspect]
     Indication: GLIOBLASTOMA
     Dosage: FREQUENCY: Q2S, LAST DOSE: 10 FEBRUARY 2010, FORM REPORTED AS LIQUID
     Route: 042
     Dates: start: 20100210, end: 20100214
  2. TEMODAL [Suspect]
     Indication: GLIOBLASTOMA
     Dosage: LAST DOSE:13 FEBRUARY 2010. DOSE FORM: PILL, PERMANENTLY DISCONTINUED.
     Route: 048
     Dates: start: 20100210, end: 20100214
  3. PANTOPRAZOLE [Concomitant]
     Dates: start: 20091229
  4. ACETAMINOPHEN [Concomitant]
     Dosage: REPORTED: ACETAMINOPHEN Q4H PRN
     Dates: start: 20091229
  5. STEMETIL [Concomitant]
     Dates: start: 20100210

REACTIONS (1)
  - TUMOUR HAEMORRHAGE [None]
